FAERS Safety Report 16196880 (Version 1)
Quarter: 2019Q2

REPORT INFORMATION
  Report Type: Spontaneous
  Country: AT (occurrence: AT)
  Receive Date: 20190415
  Receipt Date: 20190415
  Transmission Date: 20190711
  Serious: Yes (Hospitalization)
  Sender: FDA-Public Use
  Company Number: AT-EMD SERONO-9045865

PATIENT
  Age: 35 Year
  Sex: Female

DRUGS (3)
  1. MAVENCLAD [Suspect]
     Active Substance: CLADRIBINE
     Indication: RELAPSING MULTIPLE SCLEROSIS
     Dosage: FIRST WEEK THERAPY: START DATE: AUG/SEP 2018
     Dates: start: 2018
  2. ACICLOBENE                         /00587301/ [Concomitant]
     Indication: PRODUCT USED FOR UNKNOWN INDICATION
  3. MAVENCLAD [Suspect]
     Active Substance: CLADRIBINE
     Dosage: SECOND WEEK THERAPY

REACTIONS (4)
  - Alopecia [Not Recovered/Not Resolved]
  - Ovarian germ cell teratoma benign [Unknown]
  - Dizziness [Unknown]
  - Endometriosis [Unknown]
